FAERS Safety Report 8224242-2 (Version None)
Quarter: 2012Q1

REPORT INFORMATION
  Report Type: 
  Country: None (occurrence: None)
  Receive Date: 20120319
  Receipt Date: 20120309
  Transmission Date: 20120608
  Serious: Yes (Hospitalization)
  Sender: FDA-Public Use
  Company Number: TPA2012A01395

PATIENT
  Age: 47 Year
  Sex: Female
  Weight: 55.3388 kg

DRUGS (6)
  1. VENTOLIN [Concomitant]
  2. GABAPENTIN [Concomitant]
  3. RANITIDINE HYDROCHLORIDE [Concomitant]
  4. CARAFATE [Concomitant]
  5. PREVACID [Suspect]
     Indication: ULCER
     Dosage: 30 MG 2 IN 1 D, PER ORAL,  2009 OR BEFORE
     Route: 048
     Dates: start: 20090101
  6. PREVACID [Suspect]
     Indication: GASTROOESOPHAGEAL REFLUX DISEASE
     Dosage: 30 MG 2 IN 1 D, PER ORAL,  2009 OR BEFORE
     Route: 048
     Dates: start: 20090101

REACTIONS (17)
  - ABNORMAL BEHAVIOUR [None]
  - DYSPNOEA [None]
  - ULCER HAEMORRHAGE [None]
  - OROPHARYNGEAL DISCOMFORT [None]
  - PAINFUL DEFAECATION [None]
  - GASTROOESOPHAGEAL REFLUX DISEASE [None]
  - DRUG EFFECT DECREASED [None]
  - RESPIRATORY DISORDER [None]
  - HAEMORRHAGE [None]
  - DECREASED ACTIVITY [None]
  - THROAT IRRITATION [None]
  - HAEMATOCHEZIA [None]
  - WEIGHT DECREASED [None]
  - BURNING SENSATION [None]
  - DYSPHONIA [None]
  - ABNORMAL FAECES [None]
  - HYPOPHAGIA [None]
